FAERS Safety Report 11803912 (Version 1)
Quarter: 2015Q4

REPORT INFORMATION
  Report Type: Other
  Country: DE (occurrence: DE)
  Receive Date: 20151204
  Receipt Date: 20151204
  Transmission Date: 20160305
  Serious: Yes (Congenital Anomaly)
  Sender: FDA-Public Use
  Company Number: DE-VALIDUS PHARMACEUTICALS LLC-DE-2015VAL000787

PATIENT
  Age: 1 Day
  Sex: Male
  Weight: 4.02 kg

DRUGS (6)
  1. SEROQUEL [Suspect]
     Active Substance: QUETIAPINE FUMARATE
     Indication: BIPOLAR DISORDER
     Dosage: 50 MG/D 1ST + 2ND TRIM: 250 MG. SINCE WK 35+5 REDUCTION
     Route: 064
     Dates: start: 20140618, end: 20150317
  2. MISOPROSTOL. [Concomitant]
     Active Substance: MISOPROSTOL
     Indication: PRODUCT USED FOR UNKNOWN INDICATION
     Dosage: UNK
  3. FOLSAEURE [Concomitant]
     Active Substance: FOLIC ACID
     Indication: PRODUCT USED FOR UNKNOWN INDICATION
     Dosage: UNK
     Dates: start: 20140618, end: 20150329
  4. CLEXANE [Concomitant]
     Active Substance: ENOXAPARIN SODIUM
     Indication: PRODUCT USED FOR UNKNOWN INDICATION
     Dosage: UNK
     Dates: start: 20150116, end: 20150329
  5. PRESINOL [Concomitant]
     Active Substance: METHYLDOPA
     Indication: PRODUCT USED FOR UNKNOWN INDICATION
     Dosage: UNK
     Dates: start: 20140120, end: 20150329
  6. METOPROLOL TARTRATE. [Suspect]
     Active Substance: METOPROLOL TARTRATE
     Indication: HYPERTENSION
     Dosage: 47.5 MG/D
     Route: 064
     Dates: start: 20140618, end: 20150112

REACTIONS (4)
  - Infantile haemangioma [Unknown]
  - Atrial septal defect [Unknown]
  - Pulmonary artery stenosis [Unknown]
  - Haemangioma congenital [Unknown]

NARRATIVE: CASE EVENT DATE: 20150329
